FAERS Safety Report 11813621 (Version 1)
Quarter: 2015Q4

REPORT INFORMATION
  Report Type: Spontaneous
  Country: US (occurrence: US)
  Receive Date: 20151209
  Receipt Date: 20151209
  Transmission Date: 20160305
  Serious: No
  Sender: FDA-Public Use
  Company Number: US-FRI-1000080580

PATIENT
  Age: 65 Year
  Sex: Female
  Weight: 202.5 kg

DRUGS (8)
  1. TYGACIL [Concomitant]
     Active Substance: TIGECYCLINE
  2. AMIODARONE [Concomitant]
     Active Substance: AMIODARONE
  3. SYNTHROID [Concomitant]
     Active Substance: LEVOTHYROXINE SODIUM
  4. COREG [Concomitant]
     Active Substance: CARVEDILOL
  5. AVYCAZ [Suspect]
     Active Substance: AVIBACTAM SODIUM\CEFTAZIDIME
     Indication: PATHOGEN RESISTANCE
     Dosage: 3.75G
     Dates: start: 20151023, end: 20151028
  6. CELEXA [Concomitant]
     Active Substance: CITALOPRAM HYDROBROMIDE
  7. PEPCID [Concomitant]
     Active Substance: FAMOTIDINE
  8. HUMALOG [Concomitant]
     Active Substance: INSULIN LISPRO

REACTIONS (1)
  - White blood cell count increased [Unknown]

NARRATIVE: CASE EVENT DATE: 20151023
